FAERS Safety Report 11766759 (Version 1)
Quarter: 2015Q4

REPORT INFORMATION
  Report Type: Spontaneous
  Country: FR (occurrence: FR)
  Receive Date: 20151123
  Receipt Date: 20151123
  Transmission Date: 20160304
  Serious: Yes (Hospitalization)
  Sender: FDA-Public Use
  Company Number: FR-009507513-1511FRA008637

PATIENT
  Age: 30 Year
  Sex: Female

DRUGS (3)
  1. GONADOTROPIN, CHORIONIC [Suspect]
     Active Substance: CHORIOGONADOTROPIN ALFA
     Dosage: 2 DF, SINGLE DOSE
     Route: 030
     Dates: start: 20150411
  2. DECAPEPTYL [Suspect]
     Active Substance: TRIPTORELIN ACETATE
     Dosage: 1 DF, SINGLE DOSE
     Route: 030
     Dates: start: 201503
  3. GONAL-F [Suspect]
     Active Substance: FOLLITROPIN
     Dosage: 187.5 IU, QD
     Route: 058
     Dates: start: 20150401, end: 20150410

REACTIONS (2)
  - Ovarian hyperstimulation syndrome [Recovered/Resolved]
  - Pleural effusion [Recovered/Resolved]

NARRATIVE: CASE EVENT DATE: 20150425
